FAERS Safety Report 9721617 (Version 2)
Quarter: 2013Q4

REPORT INFORMATION
  Report Type: Spontaneous
  Country: US (occurrence: US)
  Receive Date: 20131201
  Receipt Date: 20131201
  Transmission Date: 20140711
  Serious: No
  Sender: FDA-Public Use
  Company Number: US-ABBVIE-13P-163-1140625-00

PATIENT
  Age: 61 Year
  Sex: Male
  Weight: 83.99 kg

DRUGS (3)
  1. ANDROGEL [Suspect]
     Indication: BLOOD TESTOSTERONE DECREASED
     Dosage: FOUR PUMPS PER DAY
     Dates: start: 201306, end: 201306
  2. PEROXITINE [Concomitant]
     Indication: DEPRESSION
  3. RAMIPRIL [Concomitant]
     Indication: HYPERTENSION

REACTIONS (3)
  - Neck pain [Recovered/Resolved]
  - Oedema peripheral [Recovered/Resolved]
  - Feeling jittery [Recovered/Resolved]
